FAERS Safety Report 23262306 (Version 1)
Quarter: 2023Q4

REPORT INFORMATION
  Report Type: Report from Study
  Country: CO (occurrence: CO)
  Receive Date: 20231205
  Receipt Date: 20231205
  Transmission Date: 20240109
  Serious: Yes (Other)
  Sender: FDA-Public Use
  Company Number: CO-TAKEDA-2023TUS116058

PATIENT
  Sex: Male
  Weight: 81 kg

DRUGS (1)
  1. VEDOLIZUMAB [Suspect]
     Active Substance: VEDOLIZUMAB
     Indication: Colitis ulcerative
     Dosage: 300 MILLIGRAM
     Route: 058
     Dates: start: 20231117

REACTIONS (5)
  - Suicidal ideation [Unknown]
  - Colitis ulcerative [Unknown]
  - Depressive symptom [Unknown]
  - Fear [Unknown]
  - Anxiety [Unknown]
